FAERS Safety Report 9384504 (Version 1)
Quarter: 2013Q2

REPORT INFORMATION
  Report Type: Spontaneous
  Country: GB (occurrence: None)
  Receive Date: 20130628
  Receipt Date: 20130628
  Transmission Date: 20140414
  Serious: Yes (Other)
  Sender: FDA-Public Use
  Company Number: 7219603

PATIENT
  Age: 49 Year
  Sex: Female

DRUGS (5)
  1. LEVOTHYROXINE [Suspect]
     Indication: HYPOTHYROIDISM
     Dosage: 1 IN 1 D
  2. LEVETIRACETAM [Suspect]
     Indication: PRODUCT USED FOR UNKNOWN INDICATION
     Dosage: 1 IN 1 D
  3. CARBAMAZEPINE [Suspect]
     Indication: PRODUCT USED FOR UNKNOWN INDICATION
     Dosage: 600 MG, 1 IN 1 D
     Dates: start: 2008
  4. ZONISAMIDE [Suspect]
     Indication: PRODUCT USED FOR UNKNOWN INDICATION
     Dosage: TAPERED AT A RATE OF 50 MG EVERY WEEK (600 MG, 1 IN 1 D)
  5. LACOSAMIDE [Suspect]
     Indication: CONVULSION
     Dosage: INCREASING BY 50 MG EVERY WEEK. (50 MG,  1 IN 1 D)

REACTIONS (6)
  - Convulsion [None]
  - Sinus arrhythmia [None]
  - Drug ineffective [None]
  - Nodal rhythm [None]
  - Heart rate decreased [None]
  - Cardiac arrest [None]
